FAERS Safety Report 9389804 (Version 2)
Quarter: 2015Q1

REPORT INFORMATION
  Report Type: Spontaneous
  Country: US (occurrence: US)
  Receive Date: 20130708
  Receipt Date: 20150320
  Transmission Date: 20150721
  Serious: No
  Sender: FDA-Public Use
  Company Number: US-AMGEN-USASP2013043973

PATIENT
  Age: 51 Year
  Sex: Male

DRUGS (4)
  1. ENBREL [Suspect]
     Active Substance: ETANERCEPT
     Indication: PSORIATIC ARTHROPATHY
     Dosage: 50 MG, QWK
     Route: 065
     Dates: start: 20070101
  2. OTEZLA [Suspect]
     Active Substance: APREMILAST
     Indication: PRODUCT USED FOR UNKNOWN INDICATION
     Dosage: UNK
     Route: 065
  3. HUMIRA [Suspect]
     Active Substance: ADALIMUMAB
     Indication: PRODUCT USED FOR UNKNOWN INDICATION
     Dosage: UNK
     Route: 065
  4. ENBREL [Suspect]
     Active Substance: ETANERCEPT
     Dosage: UNK
     Route: 065

REACTIONS (16)
  - Headache [Recovered/Resolved]
  - Arthralgia [Not Recovered/Not Resolved]
  - Asthenia [Recovered/Resolved]
  - Therapeutic response decreased [Not Recovered/Not Resolved]
  - Dyspepsia [Recovered/Resolved]
  - Eye pain [Recovered/Resolved]
  - Paranasal sinus hypersecretion [Recovered/Resolved]
  - Inflammatory marker increased [Recovered/Resolved]
  - Decreased appetite [Recovered/Resolved]
  - Incorrect product storage [Recovered/Resolved]
  - Sinusitis [Not Recovered/Not Resolved]
  - Abdominal discomfort [Recovered/Resolved]
  - Nausea [Recovered/Resolved]
  - Abdominal distension [Recovered/Resolved]
  - Joint swelling [Not Recovered/Not Resolved]
  - Vomiting [Recovered/Resolved]

NARRATIVE: CASE EVENT DATE: 201306
